FAERS Safety Report 18922540 (Version 1)
Quarter: 2021Q1

REPORT INFORMATION
  Report Type: Spontaneous
  Country: US (occurrence: US)
  Receive Date: 20210217
  Receipt Date: 20210217
  Transmission Date: 20210420
  Serious: No
  Sender: FDA-Public Use
  Company Number: None

PATIENT
  Age: 68 Year
  Sex: Female
  Weight: 86.4 kg

DRUGS (1)
  1. ESTROGEN / TESTOSTERONE HORMONE PELLETS [Suspect]
     Active Substance: ESTROGENS\TESTOSTERONE

REACTIONS (1)
  - Alopecia [None]

NARRATIVE: CASE EVENT DATE: 20200611
